FAERS Safety Report 16078221 (Version 4)
Quarter: 2019Q4

REPORT INFORMATION
  Report Type: Report from Study
  Country: CH (occurrence: CH)
  Receive Date: 20190315
  Receipt Date: 20191101
  Transmission Date: 20200122
  Serious: Yes (Death, Other)
  Sender: FDA-Public Use
  Company Number: PHHY2019CH043196

PATIENT
  Sex: Female

DRUGS (4)
  1. BYL719 [Suspect]
     Active Substance: ALPELISIB
     Indication: ENDOMETRIAL CANCER
     Dosage: 250 UKN, UNKNOWN
     Route: 065
     Dates: start: 20190302
  2. LETROZOLE. [Suspect]
     Active Substance: LETROZOLE
     Indication: PRODUCT USED FOR UNKNOWN INDICATION
     Dosage: 25 MG PER DAY
     Route: 065
     Dates: start: 201902, end: 20190927
  3. BYL719 [Suspect]
     Active Substance: ALPELISIB
     Dosage: 200 UKN, UNKNOWN
     Route: 065
     Dates: start: 20190304
  4. BYL719 [Suspect]
     Active Substance: ALPELISIB
     Indication: BREAST CANCER
     Dosage: 300 MG, UNKNOWN
     Route: 048
     Dates: start: 20190210, end: 20191011

REACTIONS (6)
  - Septic shock [Fatal]
  - Diarrhoea [Recovered/Resolved]
  - Electrocardiogram QT prolonged [Recovering/Resolving]
  - Malignant neoplasm progression [Unknown]
  - Breast cancer [Unknown]
  - Blood glucose increased [Recovering/Resolving]

NARRATIVE: CASE EVENT DATE: 20190213
